FAERS Safety Report 5130018-5 (Version None)
Quarter: 2006Q4

REPORT INFORMATION
  Report Type: 
  Country: None (occurrence: None)
  Receive Date: 20061013
  Receipt Date: 20060809
  Transmission Date: 20070319
  Serious: Yes (Hospitalization)
  Sender: FDA-Public Use
  Company Number: 2006095833

PATIENT
  Age: 64 Year
  Sex: Male

DRUGS (1)
  1. SU-011,248 (SUNITINIB MALATE) [Suspect]
     Indication: METASTATIC RENAL CELL CARCINOMA
     Dosage: 37.5 MG (37.5 MG, ONCE DAILY FOR 28 DAYS), ORAL
     Route: 048
     Dates: start: 20060412

REACTIONS (2)
  - DECREASED APPETITE [None]
  - LETHARGY [None]
